FAERS Safety Report 7657366-9 (Version None)
Quarter: 2011Q3

REPORT INFORMATION
  Report Type: 
  Country: None (occurrence: None)
  Receive Date: 20110804
  Receipt Date: 20110728
  Transmission Date: 20111222
  Serious: Yes (Other)
  Sender: FDA-Public Use
  Company Number: PHHY2011SI68361

PATIENT
  Sex: Female

DRUGS (4)
  1. HAEMATOPAN [Concomitant]
     Indication: BLOOD IRON DECREASED
     Dosage: 100 MG, UNK
     Route: 048
  2. DURAGESIC-100 [Concomitant]
     Dosage: 100 MG, EVERY 72 HOURS
     Route: 062
     Dates: start: 20040101
  3. ZOMETA [Suspect]
     Indication: METASTASES TO BONE
     Dosage: 4 MG, AT 3-4 WEEKS INTERVALS
     Dates: start: 20090902, end: 20110505
  4. MORPHINE SULFATE [Concomitant]
     Indication: PAIN
     Dosage: 10 MG, BID
     Route: 048
     Dates: start: 20060101

REACTIONS (2)
  - OSTEONECROSIS OF JAW [None]
  - PRIMARY SEQUESTRUM [None]
